FAERS Safety Report 15434468 (Version 1)
Quarter: 2018Q3

REPORT INFORMATION
  Report Type: Report from Study
  Country: AR (occurrence: AR)
  Receive Date: 20180927
  Receipt Date: 20180927
  Transmission Date: 20181010
  Serious: Yes (Death)
  Sender: FDA-Public Use
  Company Number: PHHY2018AR103380

PATIENT
  Age: 86 Year
  Sex: Male

DRUGS (1)
  1. ENTRESTO [Suspect]
     Active Substance: SACUBITRIL\VALSARTAN
     Indication: CARDIAC FAILURE
     Dosage: 50 MG, BID
     Route: 065

REACTIONS (7)
  - Malaise [Unknown]
  - Hyporesponsive to stimuli [Unknown]
  - Dizziness [Unknown]
  - Fall [Unknown]
  - Cardio-respiratory arrest [Fatal]
  - Agitation [Unknown]
  - Hypotension [Unknown]

NARRATIVE: CASE EVENT DATE: 20180519
